FAERS Safety Report 12936286 (Version 1)
Quarter: 2016Q4

REPORT INFORMATION
  Report Type: Spontaneous
  Country: US (occurrence: US)
  Receive Date: 20161114
  Receipt Date: 20161114
  Transmission Date: 20170207
  Serious: Yes (Hospitalization)
  Sender: FDA-Public Use
  Company Number: US-BAYER-2014-143847

PATIENT
  Age: 72 Year
  Sex: Female
  Weight: 67.12 kg

DRUGS (6)
  1. XARELTO [Interacting]
     Active Substance: RIVAROXABAN
     Indication: PRODUCT USED FOR UNKNOWN INDICATION
     Dosage: UNK
     Route: 048
  2. REVATIO [Concomitant]
     Active Substance: SILDENAFIL CITRATE
     Dosage: UNK
     Route: 065
  3. TYVASO [Suspect]
     Active Substance: TREPROSTINIL
     Indication: PULMONARY ARTERIAL HYPERTENSION
     Dosage: DOSAGE FORM: INHALATION, 18-54 UG (THREE TO NINE BREATHS) FOUR TIMES DAILY (QID)
     Route: 055
     Dates: start: 20140328
  4. TYVASO [Suspect]
     Active Substance: TREPROSTINIL
     Indication: PULMONARY ARTERIAL HYPERTENSION
     Dosage: DOSAGE FORM: INHALATION, 18 TO 54 UG
     Route: 055
     Dates: start: 20140401
  5. TRACLEER [Concomitant]
     Active Substance: BOSENTAN
     Route: 065
  6. ACETYLSALICYLIC ACID({=100 MG) [Suspect]
     Active Substance: ASPIRIN
     Indication: PRODUCT USED FOR UNKNOWN INDICATION
     Dosage: UNK
     Route: 065

REACTIONS (5)
  - Epistaxis [Recovered/Resolved]
  - Throat irritation [Unknown]
  - Haemorrhage [Recovered/Resolved]
  - Anaemia [Unknown]
  - Hypotension [Unknown]

NARRATIVE: CASE EVENT DATE: 2014
